FAERS Safety Report 7209210-1 (Version None)
Quarter: 2011Q1

REPORT INFORMATION
  Report Type: 
  Country: None (occurrence: None)
  Receive Date: 20110104
  Receipt Date: 20101216
  Transmission Date: 20110831
  Serious: Yes (Other)
  Sender: FDA-Public Use
  Company Number: A0805502A

PATIENT
  Age: 73 Year
  Sex: Male

DRUGS (1)
  1. AVANDIA [Suspect]
     Indication: DIABETES MELLITUS
     Dosage: 2MG PER DAY
     Route: 048
     Dates: start: 20060512, end: 20070522

REACTIONS (2)
  - TRANSIENT ISCHAEMIC ATTACK [None]
  - HEART RATE IRREGULAR [None]
